FAERS Safety Report 9303806 (Version 1)
Quarter: 2013Q2

REPORT INFORMATION
  Report Type: Report from Study
  Country: US (occurrence: None)
  Receive Date: 20130520
  Receipt Date: 20130520
  Transmission Date: 20140414
  Serious: Yes (Other)
  Sender: FDA-Public Use
  Company Number: 1709608

PATIENT
  Age: 77 Year
  Sex: Male

DRUGS (5)
  1. VINCRISTINE SULFATE [Suspect]
     Indication: CHEMOTHERAPY
  2. RITUXAN [Suspect]
     Indication: CHEMOTHERAPY
  3. ADRIAMYCIN [Suspect]
     Indication: CHEMOTHERAPY
  4. CYTOXAN [Suspect]
     Indication: CHEMOTHERAPY
  5. INVESTIGATIONAL DRUG [Suspect]
     Indication: PROPHYLAXIS OF NAUSEA AND VOMITING

REACTIONS (3)
  - Neutropenia [None]
  - Sepsis [None]
  - Haematotoxicity [None]
